FAERS Safety Report 9919947 (Version 1)
Quarter: 2014Q1

REPORT INFORMATION
  Report Type: Spontaneous
  Country: NL (occurrence: NL)
  Receive Date: 20140224
  Receipt Date: 20140224
  Transmission Date: 20141002
  Serious: Yes (Hospitalization)
  Sender: FDA-Public Use
  Company Number: NL-TEVA-463701ISR

PATIENT
  Age: 65 Year
  Sex: Female

DRUGS (7)
  1. IBUPROFEN TABLET 600MG [Suspect]
     Indication: MUSCULOSKELETAL DISCOMFORT
     Dosage: 1800 MILLIGRAM DAILY; 3 TIMES DAILY 600 MG
     Route: 048
  2. DESMOPRESSINE TABLET 0,1MG [Interacting]
     Dosage: .2 MILLIGRAM DAILY;
     Route: 048
  3. FLUVOXAMINE MALEATE [Concomitant]
     Dosage: 1DD100MG -} 1DD2X50MG
     Route: 048
  4. PROPRANOLOL TABLET 40MG [Concomitant]
     Dosage: 80 MILLIGRAM DAILY; 2DD40MG
     Route: 048
  5. LEVOTHYROXINE TABLET  75UG (NATRIUM) [Concomitant]
     Dosage: 1DD75MCG-}1DD3X25MCG
     Route: 048
  6. OMEPRAZOL CAPSULE MGA 20MG [Concomitant]
     Dosage: 20 MILLIGRAM DAILY; 1DD1
     Route: 048
  7. CORTISON TABLET 25MG [Concomitant]
     Dosage: 2 DOSAGE FORMS DAILY; 2DD(37,5-12,5MG)
     Route: 048

REACTIONS (2)
  - Hyponatraemia [Recovered/Resolved]
  - Drug interaction [Recovered/Resolved]
